FAERS Safety Report 8848119 (Version 1)
Quarter: 2012Q4

REPORT INFORMATION
  Report Type: 
  Country: US (occurrence: US)
  Receive Date: 20121018
  Receipt Date: 20121018
  Transmission Date: 20130627
  Serious: Yes (Other)
  Sender: FDA-Public Use
  Company Number: US-ROCHE-1132640

PATIENT
  Age: 9 Year
  Sex: Male
  Weight: 47 kg

DRUGS (2)
  1. PROTROPIN [Suspect]
     Indication: CONGENITAL ENDOCRINE ANOMALY
     Route: 058
     Dates: start: 19990816
  2. SYNTHROID [Concomitant]
     Route: 065

REACTIONS (2)
  - Heart sounds abnormal [Unknown]
  - Hyperhidrosis [Unknown]
